FAERS Safety Report 15455032 (Version 2)
Quarter: 2018Q4

REPORT INFORMATION
  Report Type: Report from Study
  Country: IT (occurrence: IT)
  Receive Date: 20181002
  Receipt Date: 20181215
  Transmission Date: 20190204
  Serious: Yes (Hospitalization)
  Sender: FDA-Public Use
  Company Number: IT-TEVA-2018-IT-960296

PATIENT
  Age: 72 Year
  Sex: Female

DRUGS (9)
  1. NADOLOL. [Concomitant]
     Active Substance: NADOLOL
     Dosage: 80 MILLIGRAM DAILY;
     Route: 048
  2. TRAMADOL HYDROCHLORIDE. [Suspect]
     Active Substance: TRAMADOL HYDROCHLORIDE
     Indication: BACK PAIN
     Dosage: 50 MICROGRAM DAILY;
     Route: 048
     Dates: start: 20180508, end: 20180509
  3. LUVION 50 MG COMPRESSE [Concomitant]
     Active Substance: CANRENONE
     Route: 065
  4. ATORVASTATIN [Concomitant]
     Active Substance: ATORVASTATIN
     Route: 065
  5. GLUCOPHAGE [Concomitant]
     Active Substance: METFORMIN HYDROCHLORIDE
     Route: 065
  6. BARNIDIPINE HYDROCHLORIDE [Concomitant]
     Active Substance: BARNIDIPINE HYDROCHLORIDE
     Route: 065
  7. LIMBITRYL 12.5 MG/5 MG CAPSULE RIGIDE [Concomitant]
     Route: 065
  8. COTAREG 320 MG/25 MG COMPRESSE RIVESTITE CON FILM [Concomitant]
     Dosage: 1 MILLIGRAM DAILY;
     Route: 065
  9. PANTORC 20 MG COMPRESSE GASTRORESISTENTI [Concomitant]
     Active Substance: PANTOPRAZOLE SODIUM
     Route: 065

REACTIONS (4)
  - Malaise [Recovered/Resolved]
  - Salivary hypersecretion [Recovered/Resolved]
  - Nausea [Recovered/Resolved]
  - Dizziness [Recovered/Resolved]

NARRATIVE: CASE EVENT DATE: 20180509
